APPROVED DRUG PRODUCT: BUPRENORPHINE HYDROCHLORIDE AND NALOXONE HYDROCHLORIDE
Active Ingredient: BUPRENORPHINE HYDROCHLORIDE; NALOXONE HYDROCHLORIDE
Strength: EQ 2MG BASE;EQ 0.5MG BASE
Dosage Form/Route: TABLET;SUBLINGUAL
Application: A214930 | Product #001 | TE Code: AB
Applicant: ALKEM LABORATORIES LTD
Approved: Jun 15, 2021 | RLD: No | RS: No | Type: RX